FAERS Safety Report 4797355-5 (Version None)
Quarter: 2005Q4

REPORT INFORMATION
  Report Type: 
  Country: None (occurrence: None)
  Receive Date: 20051013
  Receipt Date: 20051006
  Transmission Date: 20060501
  Serious: Yes (Hospitalization)
  Sender: FDA-Public Use
  Company Number: US-JNJFOC-20051001729

PATIENT
  Sex: Female
  Weight: 55.34 kg

DRUGS (7)
  1. FENTANYL [Suspect]
     Route: 062
     Dates: start: 20050201
  2. FENTANYL [Suspect]
     Route: 062
     Dates: start: 20050201
  3. DILAUDID [Concomitant]
     Indication: PAIN
     Route: 048
     Dates: start: 20040101
  4. NEURONTIN [Concomitant]
     Route: 048
     Dates: start: 20050101
  5. AVONEX [Concomitant]
     Route: 030
     Dates: start: 20050801
  6. KLONOPIN [Concomitant]
     Indication: PAIN
     Route: 048
     Dates: start: 20030101
  7. CYMBALTA [Concomitant]
     Indication: DEPRESSION
     Route: 048
     Dates: start: 20050801

REACTIONS (2)
  - BRADYCARDIA [None]
  - MULTIPLE SCLEROSIS [None]
